FAERS Safety Report 16403112 (Version 1)
Quarter: 2019Q2

REPORT INFORMATION
  Report Type: Spontaneous
  Country: GB (occurrence: GB)
  Receive Date: 20190607
  Receipt Date: 20190607
  Transmission Date: 20190711
  Serious: Yes (Other)
  Sender: FDA-Public Use
  Company Number: GB-TEVA-2019-GB-1058148

PATIENT
  Age: 21 Year
  Sex: Female

DRUGS (7)
  1. LORAZEPAM. [Concomitant]
     Active Substance: LORAZEPAM
     Dosage: 1.5MG MORNING AND 1MG NIGHT
  2. LAMICTAL [Suspect]
     Active Substance: LAMOTRIGINE
     Indication: EPILEPSY
     Dosage: GIVEN AS SUPPOSITORY AFTER TABLET HAD BEEN USED TO MAKE EXTEMPOROUS PRODUCT.
     Route: 054
  3. TEVA UK LAMOTRIGINE [Suspect]
     Active Substance: LAMOTRIGINE
     Indication: EPILEPSY
     Dosage: VIA PERCUTANEOUS ENDOSCOPIC GASTROMY (PEG) TUBE
  4. RANBAXY UK LANSOPRAZOLE [Concomitant]
  5. EPILIM [Concomitant]
     Active Substance: VALPROATE SODIUM
     Dosage: 400MG MORNING AND 600MG NIGHT
  6. HIPREX [Concomitant]
     Active Substance: METHENAMINE HIPPURATE
  7. LYRICA [Concomitant]
     Active Substance: PREGABALIN

REACTIONS (6)
  - Lip swelling [Recovered/Resolved]
  - Agitation [Recovered/Resolved]
  - Rhinorrhoea [Recovered/Resolved]
  - Epilepsy [Recovered/Resolved]
  - Rash macular [Recovered/Resolved]
  - Hypersensitivity [Recovered/Resolved]
